FAERS Safety Report 15837887 (Version 1)
Quarter: 2019Q1

REPORT INFORMATION
  Report Type: Spontaneous
  Country: US (occurrence: US)
  Receive Date: 20190117
  Receipt Date: 20190117
  Transmission Date: 20190417
  Serious: Yes (Hospitalization)
  Sender: FDA-Public Use
  Company Number: None

PATIENT
  Sex: Male

DRUGS (15)
  1. PULMOZYME [Suspect]
     Active Substance: DORNASE ALFA
     Indication: CYSTIC FIBROSIS
     Route: 048
     Dates: start: 20150509
  2. PERTZYE [Concomitant]
     Active Substance: PANCRELIPASE AMYLASE\PANCRELIPASE LIPASE\PANCRELIPASE PROTEASE
  3. FUROSEMIDE. [Concomitant]
     Active Substance: FUROSEMIDE
  4. RIFAMPIN. [Concomitant]
     Active Substance: RIFAMPIN
  5. CARTIA XT [Concomitant]
     Active Substance: DILTIAZEM HYDROCHLORIDE
  6. SIVEXTRO [Concomitant]
     Active Substance: TEDIZOLID PHOSPHATE
  7. OSELTAMIVIR [Concomitant]
     Active Substance: OSELTAMIVIR
  8. ENALAPRIL [Concomitant]
     Active Substance: ENALAPRIL
  9. DILTIAZEM. [Concomitant]
     Active Substance: DILTIAZEM
  10. DRONABINOL. [Concomitant]
     Active Substance: DRONABINOL
  11. DEKAS PLUS [Concomitant]
  12. POTASSIUM CHLORIDE. [Concomitant]
     Active Substance: POTASSIUM CHLORIDE
  13. HYDROCHLOROT [Concomitant]
     Active Substance: HYDROCHLOROTHIAZIDE
  14. LANSOPRAZOLE. [Concomitant]
     Active Substance: LANSOPRAZOLE
  15. MIRTAZAPINE. [Concomitant]
     Active Substance: MIRTAZAPINE

REACTIONS (1)
  - Cystic fibrosis [None]
